FAERS Safety Report 9212779 (Version 1)
Quarter: 2013Q2

REPORT INFORMATION
  Report Type: Spontaneous
  Country: US (occurrence: None)
  Receive Date: 20130403
  Receipt Date: 20130403
  Transmission Date: 20140414
  Serious: Yes (Death)
  Sender: FDA-Public Use
  Company Number: None

PATIENT
  Age: 57 Year
  Sex: Male
  Weight: 130.4 kg

DRUGS (5)
  1. CISPLATIN [Suspect]
  2. LISINOPRIL [Concomitant]
  3. LORAZEPAM [Concomitant]
  4. ONDANSETRON [Concomitant]
  5. PROCHLORPERAZINE [Concomitant]

REACTIONS (4)
  - Cardio-respiratory arrest [None]
  - Fall [None]
  - Unresponsive to stimuli [None]
  - Pulse absent [None]
